FAERS Safety Report 14448700 (Version 7)
Quarter: 2019Q1

REPORT INFORMATION
  Report Type: Spontaneous
  Country: US (occurrence: US)
  Receive Date: 20180126
  Receipt Date: 20190219
  Transmission Date: 20190417
  Serious: Yes (Hospitalization)
  Sender: FDA-Public Use
  Company Number: US-DSJP-DSU-2017-141172

PATIENT

DRUGS (2)
  1. TRIBENZOR [Suspect]
     Active Substance: AMLODIPINE BESYLATE\HYDROCHLOROTHIAZIDE\OLMESARTAN MEDOXOMIL
     Indication: ESSENTIAL HYPERTENSION
     Dosage: 40-5-25 MG  , QD
     Route: 048
     Dates: end: 20180226
  2. BENICAR [Suspect]
     Active Substance: OLMESARTAN MEDOXOMIL
     Indication: PRODUCT USED FOR UNKNOWN INDICATION
     Dosage: 40 MG, QD
     Route: 048
     Dates: end: 20161106

REACTIONS (4)
  - Dizziness [Unknown]
  - Cholecystectomy [Recovered/Resolved]
  - Sprue-like enteropathy [Recovering/Resolving]
  - Colectomy [Recovered/Resolved]

NARRATIVE: CASE EVENT DATE: 20130630
